FAERS Safety Report 26207908 (Version 1)
Quarter: 2025Q4

REPORT INFORMATION
  Report Type: Spontaneous
  Country: US (occurrence: None)
  Receive Date: 20251226
  Receipt Date: 20251226
  Transmission Date: 20260117
  Serious: Yes (Hospitalization)
  Sender: FDA-CTU
  Company Number: None

PATIENT
  Age: 67 Year
  Sex: Male

DRUGS (24)
  1. TACROLIMUS [Suspect]
     Active Substance: TACROLIMUS
     Indication: Heart transplant
     Dosage: 3 MG TWICE A DAY ORAL
     Route: 048
  2. TACROLIMUS [Suspect]
     Active Substance: TACROLIMUS
     Indication: Heart transplant
     Dosage: 0.5 MG TWICE A DAY ORAL
     Route: 048
  3. MYCOPHENOLIC ACID [Suspect]
     Active Substance: MYCOPHENOLIC ACID
  4. valganciclovir 450 mg tablet [Concomitant]
  5. Softclix lancets [Concomitant]
  6. CHLORTHALIDONE [Concomitant]
     Active Substance: CHLORTHALIDONE
  7. doxazosin 2 mg tablet [Concomitant]
  8. Mag-oxide 400 mg tablet [Concomitant]
  9. PREDNISONE [Concomitant]
     Active Substance: PREDNISONE
  10. FUROSEMIDE [Concomitant]
     Active Substance: FUROSEMIDE
  11. GABAPENTIN [Concomitant]
     Active Substance: GABAPENTIN
  12. Eliquis 2.5 mg tablet [Concomitant]
  13. acetaminophen 325 mg tablet [Concomitant]
  14. polyeth glycol 3350 NF powder [Concomitant]
  15. posaconazole 100 mg DR tablet (Stopped taking in November 2025) [Concomitant]
     Dates: start: 20251031
  16. atovaquone 750 mg/5 mL suspension [Concomitant]
  17. OMEPRAZOLE [Concomitant]
     Active Substance: OMEPRAZOLE
  18. TRAZODONE [Concomitant]
     Active Substance: TRAZODONE HYDROCHLORIDE
  19. AMLODIPINE BESYLATE [Concomitant]
     Active Substance: AMLODIPINE BESYLATE
  20. calcium citrate + D3 tablet [Concomitant]
  21. Novolin N U-100 flexpen inj [Concomitant]
  22. Novolog flexpen inj [Concomitant]
  23. Accu-check guide me kit [Concomitant]
  24. Slowmag MG muscle/heart tablet [Concomitant]

REACTIONS (2)
  - Heart transplant rejection [None]
  - Treatment noncompliance [None]

NARRATIVE: CASE EVENT DATE: 20251222
